FAERS Safety Report 7069704-9 (Version None)
Quarter: 2010Q4

REPORT INFORMATION
  Report Type: 
  Country: None (occurrence: None)
  Receive Date: 20101028
  Receipt Date: 20100614
  Transmission Date: 20110411
  Serious: No
  Sender: FDA-Public Use
  Company Number: US-WYE-H15078610

PATIENT
  Sex: Male
  Weight: 136.2 kg

DRUGS (2)
  1. PANTOPRAZOLE [Suspect]
     Indication: GASTRIC ULCER HAEMORRHAGE
     Route: 048
     Dates: end: 20100420
  2. ASCORBIC ACID [Concomitant]

REACTIONS (2)
  - DIARRHOEA [None]
  - URINE ODOUR ABNORMAL [None]
